FAERS Safety Report 9470165 (Version 1)
Quarter: 2013Q3

REPORT INFORMATION
  Report Type: Spontaneous
  Country: None (occurrence: US)
  Receive Date: 20130822
  Receipt Date: 20130822
  Transmission Date: 20140515
  Serious: Yes (Hospitalization)
  Sender: FDA-Public Use
  Company Number: US-COVIDIEN/TYCO HEALTHCARE/MALLINCKRODT-T201303707

PATIENT
  Age: 5 Year
  Sex: Female

DRUGS (1)
  1. GABLOFEN [Suspect]
     Indication: MUSCLE SPASTICITY
     Dosage: 345.5 MCG/DAY
     Route: 037

REACTIONS (4)
  - Withdrawal syndrome [Unknown]
  - Muscle spasticity [Unknown]
  - Hypertonia [Unknown]
  - Device failure [Unknown]
